FAERS Safety Report 7582337-0 (Version None)
Quarter: 2011Q2

REPORT INFORMATION
  Report Type: 
  Country: None (occurrence: None)
  Receive Date: 20110630
  Receipt Date: 20110623
  Transmission Date: 20111010
  Serious: Yes (Other)
  Sender: FDA-Public Use
  Company Number: US-JNJFOC-20100509301

PATIENT
  Sex: Female

DRUGS (9)
  1. CELEXA [Concomitant]
  2. PLAVIX [Concomitant]
  3. ALBUTEROL SULFATE AUTOHALER [Concomitant]
  4. SIMPONI [Suspect]
     Indication: PSORIATIC ARTHROPATHY
     Route: 058
     Dates: start: 20090701
  5. PROCARDIA [Concomitant]
     Indication: HYPERTENSION
  6. SINGULAIR [Concomitant]
  7. LIPITOR [Concomitant]
  8. ZYRTEC [Concomitant]
  9. SYNTHROID [Concomitant]

REACTIONS (1)
  - HYPERTHYROIDISM [None]
